FAERS Safety Report 10420479 (Version 1)
Quarter: 2014Q3

REPORT INFORMATION
  Report Type: Spontaneous
  Country: US (occurrence: None)
  Receive Date: 20140707
  Receipt Date: 20140707
  Transmission Date: 20150326
  Serious: Yes (Other)
  Sender: FDA-Public Use
  Company Number: US-SEPTODONT-201301723

PATIENT
  Sex: Male
  Weight: 29 kg

DRUGS (1)
  1. SEPTOCAINE [Suspect]
     Active Substance: ARTICAINE HYDROCHLORIDE\EPINEPHRINE BITARTRATE
     Indication: LOCAL ANAESTHESIA
     Route: 004
     Dates: start: 20120217, end: 20120217

REACTIONS (3)
  - Oedema mouth [None]
  - Lip swelling [None]
  - Hypersensitivity [None]

NARRATIVE: CASE EVENT DATE: 20120217
